FAERS Safety Report 6603208-X (Version None)
Quarter: 2010Q1

REPORT INFORMATION
  Report Type: 
  Country: None (occurrence: None)
  Receive Date: 20100219
  Receipt Date: 20100210
  Transmission Date: 20100710
  Serious: Yes (Hospitalization)
  Sender: FDA-Public Use
  Company Number: 502379

PATIENT
  Age: 82 Year
  Sex: Male

DRUGS (11)
  1. HEPARIN SODIUM INJECTION [Suspect]
     Indication: DRUG USE FOR UNKNOWN INDICATION
     Dosage: INTRAVENOUS
     Route: 042
  2. ASPIRIN [Concomitant]
  3. ATACAND [Concomitant]
  4. FUROSEMIDE [Concomitant]
  5. LIPITOR [Concomitant]
  6. METOPROLOL [Concomitant]
  7. NITROGLYCERIN [Concomitant]
  8. OXYBUTYNIN [Concomitant]
  9. PANTOPRAZOLE [Concomitant]
  10. PLAVIX [Concomitant]
  11. WARFARIN SODIUM [Concomitant]

REACTIONS (3)
  - ARTHRALGIA [None]
  - CORONARY ARTERY OCCLUSION [None]
  - MUSCLE HAEMORRHAGE [None]
